FAERS Safety Report 12245126 (Version 3)
Quarter: 2016Q2

REPORT INFORMATION
  Report Type: Spontaneous
  Country: US (occurrence: US)
  Receive Date: 20160407
  Receipt Date: 20160418
  Transmission Date: 20160815
  Serious: No
  Sender: FDA-Public Use
  Company Number: US-TEVA-626188USA

PATIENT
  Age: 65 Year
  Sex: Female

DRUGS (5)
  1. ZECUITY [Suspect]
     Active Substance: SUMATRIPTAN SUCCINATE
     Route: 062
     Dates: start: 20160113, end: 20160113
  2. ZECUITY [Suspect]
     Active Substance: SUMATRIPTAN SUCCINATE
     Route: 062
     Dates: start: 20160120, end: 20160120
  3. TIZANIDINE. [Concomitant]
     Active Substance: TIZANIDINE
  4. LIPITOR [Concomitant]
     Active Substance: ATORVASTATIN CALCIUM
  5. ESCITALOPRAM [Concomitant]
     Active Substance: ESCITALOPRAM OXALATE

REACTIONS (8)
  - Drug effect incomplete [Unknown]
  - Application site erythema [Not Recovered/Not Resolved]
  - Application site pain [Unknown]
  - Drug ineffective [Unknown]
  - Application site erosion [Unknown]
  - Application site swelling [Not Recovered/Not Resolved]
  - Application site urticaria [Not Recovered/Not Resolved]
  - Application site rash [Not Recovered/Not Resolved]

NARRATIVE: CASE EVENT DATE: 20160101
